FAERS Safety Report 5925233-4 (Version None)
Quarter: 2008Q4

REPORT INFORMATION
  Report Type: 
  Country: None (occurrence: None)
  Receive Date: 20081020
  Receipt Date: 20081020
  Transmission Date: 20090506
  Serious: Yes (Other)
  Sender: FDA-Public Use
  Company Number: None

PATIENT
  Age: 70 Year
  Sex: Male
  Weight: 68.0396 kg

DRUGS (4)
  1. MERTAZAPINE 15 MG. GENERIC [Suspect]
     Indication: DEPRESSION
     Dosage: 15 MG DAILY PO
     Route: 048
     Dates: start: 20081019, end: 20081019
  2. MERTAZAPINE 15 MG. GENERIC [Suspect]
     Indication: INSOMNIA
     Dosage: 15 MG DAILY PO
     Route: 048
     Dates: start: 20081019, end: 20081019
  3. LUNESTA [Suspect]
     Indication: INSOMNIA
     Dosage: 4 MG DAILY PO
     Route: 048
     Dates: start: 20070901, end: 20081019
  4. VITAMINS AND MINERALS [Concomitant]

REACTIONS (7)
  - BALANCE DISORDER [None]
  - DRY MOUTH [None]
  - FATIGUE [None]
  - INSOMNIA [None]
  - LETHARGY [None]
  - NOCTURIA [None]
  - SOMNOLENCE [None]
